FAERS Safety Report 18159655 (Version 3)
Quarter: 2021Q3

REPORT INFORMATION
  Report Type: Report from Study
  Country: US (occurrence: US)
  Receive Date: 20200818
  Receipt Date: 20210805
  Transmission Date: 20211014
  Serious: No
  Sender: FDA-Public Use
  Company Number: US-GW PHARMA-202008USGW02780

PATIENT

DRUGS (2)
  1. EPIDIOLEX [Suspect]
     Active Substance: CANNABIDIOL
     Indication: PRODUCT USED FOR UNKNOWN INDICATION
     Dosage: UNK
     Route: 048
  2. CHOLBAM [Suspect]
     Active Substance: CHOLIC ACID
     Indication: REFSUM^S DISEASE
     Dosage: 500 MILLIGRAM, QD
     Route: 065
     Dates: start: 20150502

REACTIONS (6)
  - Hypersensitivity [Unknown]
  - Yellow skin [Unknown]
  - Scratch [Unknown]
  - Liver function test increased [Unknown]
  - Pruritus [Unknown]
  - Abdominal pain upper [Unknown]
